FAERS Safety Report 4588567-4 (Version None)
Quarter: 2005Q1

REPORT INFORMATION
  Report Type: 
  Country: None (occurrence: None)
  Receive Date: 20050218
  Receipt Date: 20050211
  Transmission Date: 20050727
  Serious: Yes (Other)
  Sender: FDA-Public Use
  Company Number: 2005-UK-00231UK

PATIENT
  Age: 38 Year
  Sex: Female

DRUGS (10)
  1. MORPHINE [Suspect]
     Indication: POST PROCEDURAL PAIN
     Dosage: 10-30 MG TWICE DAILY
     Route: 048
     Dates: end: 20050122
  2. LYRICA [Suspect]
     Indication: PHANTOM PAIN
     Dosage: SEE IMAGE
     Route: 048
     Dates: start: 20041101
  3. LYRICA [Suspect]
     Indication: PHANTOM PAIN
     Dosage: SEE IMAGE
     Route: 048
     Dates: start: 20050131
  4. SEVREDOL    (MORPHINE SULFATE) [Suspect]
     Indication: PAIN
     Dosage: 20 MG 4 HOURLY AS REQUIRED
     Route: 048
     Dates: start: 20041124
  5. LANSOPRAZOLE [Concomitant]
  6. ASCORBIC ACID [Concomitant]
  7. CALCORT (DEFLAZACORT) [Concomitant]
  8. CALCICHEW (CALCIUM CARBONATE) [Concomitant]
  9. CALCITRIOL [Concomitant]
  10. RISEDRONIC ACID (RISEDRONIC ACID) [Concomitant]

REACTIONS (1)
  - DYSKINESIA [None]
